FAERS Safety Report 9780159 (Version 3)
Quarter: 2014Q1

REPORT INFORMATION
  Report Type: Spontaneous
  Country: US (occurrence: US)
  Receive Date: 20131223
  Receipt Date: 20140211
  Transmission Date: 20141002
  Serious: Yes (Other)
  Sender: FDA-Public Use
  Company Number: PHEH2013US025800

PATIENT
  Age: 14 Year
  Sex: Female

DRUGS (4)
  1. FANAPT [Suspect]
     Indication: ABNORMAL BEHAVIOUR
     Dosage: 2 MG, AT NIGHT
     Route: 048
     Dates: start: 20131112, end: 20131118
  2. TEGRETOL [Suspect]
     Indication: CONVULSION
     Dosage: UNK
     Route: 048
  3. TEGRETOL [Suspect]
     Dosage: DOSE LOWERED
     Route: 048
     Dates: end: 20140115
  4. RISPERIDONE [Suspect]
     Indication: ABNORMAL BEHAVIOUR
     Dosage: 2 MG, AT NIGHT
     Route: 048
     Dates: start: 20130920

REACTIONS (1)
  - Delirium [Recovered/Resolved]
